FAERS Safety Report 5038701-7 (Version None)
Quarter: 2006Q2

REPORT INFORMATION
  Report Type: 
  Country: None (occurrence: None)
  Receive Date: 20060629
  Receipt Date: 20060410
  Transmission Date: 20061013
  Serious: No
  Sender: FDA-Public Use
  Company Number: US-BRISTOL-MYERS SQUIBB COMPANY-13342217

PATIENT

DRUGS (2)
  1. REYATAZ [Suspect]
  2. COMBIVIR [Concomitant]

REACTIONS (1)
  - AMMONIA INCREASED [None]
